FAERS Safety Report 21603942 (Version 4)
Quarter: 2023Q4

REPORT INFORMATION
  Report Type: Report from Study
  Country: JP (occurrence: JP)
  Receive Date: 20221116
  Receipt Date: 20231207
  Transmission Date: 20240110
  Serious: Yes (Other)
  Sender: FDA-Public Use
  Company Number: JP-OTSUKA-2022_051690

PATIENT
  Age: 48 Year
  Sex: Female
  Weight: 49 kg

DRUGS (18)
  1. ARIPIPRAZOLE [Suspect]
     Active Substance: ARIPIPRAZOLE
     Indication: Bipolar I disorder
     Dosage: 400MG/SHOT
     Route: 030
     Dates: start: 20211020, end: 20211020
  2. ARIPIPRAZOLE [Suspect]
     Active Substance: ARIPIPRAZOLE
     Dosage: 400MG/SHOT
     Route: 030
     Dates: start: 20211117, end: 20211117
  3. ARIPIPRAZOLE [Suspect]
     Active Substance: ARIPIPRAZOLE
     Dosage: 400MG/SHOT
     Route: 030
     Dates: start: 20211215, end: 20211215
  4. ARIPIPRAZOLE [Suspect]
     Active Substance: ARIPIPRAZOLE
     Dosage: 400MG/SHOT
     Route: 030
     Dates: start: 20220112, end: 20220112
  5. ARIPIPRAZOLE [Suspect]
     Active Substance: ARIPIPRAZOLE
     Dosage: 400MG/SHOT
     Route: 030
     Dates: start: 20220209, end: 20220209
  6. ARIPIPRAZOLE [Suspect]
     Active Substance: ARIPIPRAZOLE
     Dosage: 400MG/SHOT
     Route: 030
     Dates: start: 20220308, end: 20220308
  7. ARIPIPRAZOLE [Suspect]
     Active Substance: ARIPIPRAZOLE
     Dosage: 400MG/SHOT
     Route: 030
     Dates: start: 20220405, end: 20220405
  8. ARIPIPRAZOLE [Suspect]
     Active Substance: ARIPIPRAZOLE
     Dosage: 400MG/SHOT
     Route: 030
     Dates: start: 20220506, end: 20220506
  9. ARIPIPRAZOLE [Suspect]
     Active Substance: ARIPIPRAZOLE
     Dosage: 400MG/SHOT
     Route: 030
     Dates: start: 20220607, end: 20220607
  10. ARIPIPRAZOLE [Suspect]
     Active Substance: ARIPIPRAZOLE
     Dosage: 400MG/SHOT
     Route: 030
     Dates: start: 20220705, end: 20220705
  11. ARIPIPRAZOLE [Suspect]
     Active Substance: ARIPIPRAZOLE
     Dosage: 400MG/SHOT
     Route: 030
     Dates: start: 20220802, end: 20220802
  12. ARIPIPRAZOLE [Suspect]
     Active Substance: ARIPIPRAZOLE
     Dosage: 400MG/SHOT
     Route: 030
     Dates: start: 20220830, end: 20220830
  13. ARIPIPRAZOLE [Suspect]
     Active Substance: ARIPIPRAZOLE
     Dosage: 400MG/SHOT
     Route: 030
     Dates: start: 20220927, end: 20220927
  14. ARIPIPRAZOLE [Suspect]
     Active Substance: ARIPIPRAZOLE
     Dosage: 400MG/SHOT
     Route: 030
     Dates: start: 20221028, end: 20221028
  15. REXULTI [Concomitant]
     Active Substance: BREXPIPRAZOLE
     Indication: Schizoaffective disorder
     Dosage: 2 MG/DAY
     Route: 048
     Dates: start: 20220607
  16. LAMOTRIGINE [Concomitant]
     Active Substance: LAMOTRIGINE
     Indication: Bipolar I disorder
     Dosage: 50 MG/DAY
     Route: 048
     Dates: start: 20220125, end: 20220920
  17. ARIPIPRAZOLE [Concomitant]
     Active Substance: ARIPIPRAZOLE
     Indication: Bipolar I disorder
     Dosage: 24MG/DAY
     Route: 048
     Dates: start: 20210922, end: 20211222
  18. ARIPIPRAZOLE [Concomitant]
     Active Substance: ARIPIPRAZOLE
     Dosage: 12MG/DAY
     Route: 048
     Dates: start: 20211223, end: 20220103

REACTIONS (5)
  - Autism spectrum disorder [Unknown]
  - Schizoaffective disorder [Recovering/Resolving]
  - Dystonia [Recovering/Resolving]
  - Oculogyric crisis [Recovering/Resolving]
  - Anticipatory anxiety [Recovering/Resolving]

NARRATIVE: CASE EVENT DATE: 20211101
